FAERS Safety Report 4429494-2 (Version None)
Quarter: 2004Q3

REPORT INFORMATION
  Report Type: 
  Country: None (occurrence: None)
  Receive Date: 20040818
  Receipt Date: 20040818
  Transmission Date: 20050211
  Serious: Yes (Hospitalization)
  Sender: FDA-Public Use
  Company Number: None

PATIENT
  Age: 73 Year
  Sex: Female
  Weight: 68.7 kg

DRUGS (14)
  1. WARFARIN SODIUM [Suspect]
     Indication: ATRIAL FIBRILLATION
     Dosage: 5MG ALT 7.5 MG PO DAILY
     Route: 048
  2. ASPIRIN [Suspect]
     Indication: ATRIAL FIBRILLATION
     Dosage: 81 MG PO DAILY
     Route: 048
  3. ASPIRIN [Suspect]
     Indication: CEREBROVASCULAR ACCIDENT
     Dosage: 81 MG PO DAILY
     Route: 048
  4. ASPIRIN [Concomitant]
  5. PLAVIX [Concomitant]
  6. NORVASC [Concomitant]
  7. LOPRESSOR [Concomitant]
  8. QUESTAR [Concomitant]
  9. MECLIZINE [Concomitant]
  10. TRAZODONE [Concomitant]
  11. ENALAPRIL [Concomitant]
  12. XANAX [Concomitant]
  13. COUMADIN [Concomitant]
  14. PERCOCET [Concomitant]

REACTIONS (4)
  - COLONOSCOPY ABNORMAL [None]
  - GASTROINTESTINAL HAEMORRHAGE [None]
  - INTERNATIONAL NORMALISED RATIO INCREASED [None]
  - RECTAL ULCER [None]
